FAERS Safety Report 7215990-1 (Version None)
Quarter: 2011Q1

REPORT INFORMATION
  Report Type: 
  Country: None (occurrence: None)
  Receive Date: 20110107
  Receipt Date: 20101224
  Transmission Date: 20110831
  Serious: Yes (Other)
  Sender: FDA-Public Use
  Company Number: PHHY2010IN88183

PATIENT
  Age: 36 Year
  Sex: Male

DRUGS (1)
  1. TRIAMCINOLONE [Suspect]
     Dosage: 0.1 ML, UNK

REACTIONS (6)
  - CHORIORETINOPATHY [None]
  - RETINAL OEDEMA [None]
  - RETINAL DISORDER [None]
  - METAMORPHOPSIA [None]
  - VISUAL ACUITY REDUCED [None]
  - CORNEAL LESION [None]
